FAERS Safety Report 8174002-6 (Version None)
Quarter: 2012Q1

REPORT INFORMATION
  Report Type: 
  Country: None (occurrence: None)
  Receive Date: 20120227
  Receipt Date: 20120210
  Transmission Date: 20120608
  Serious: No
  Sender: FDA-Public Use
  Company Number: ENDC20120011

PATIENT
  Age: 64 Year
  Sex: Female

DRUGS (1)
  1. OXYCODONE AND ACETAMINOPHEN [Suspect]
     Indication: PRODUCT USED FOR UNKNOWN INDICATION
     Dosage: 10/325 MG, ORAL
     Route: 048

REACTIONS (2)
  - PRODUCT QUALITY ISSUE [None]
  - ABDOMINAL PAIN UPPER [None]
